FAERS Safety Report 7577438-7 (Version None)
Quarter: 2011Q2

REPORT INFORMATION
  Report Type: 
  Country: None (occurrence: None)
  Receive Date: 20110621
  Receipt Date: 20110608
  Transmission Date: 20111010
  Serious: Yes (Hospitalization)
  Sender: FDA-Public Use
  Company Number: FUR-11-10

PATIENT
  Age: 82 Year
  Sex: Female
  Weight: 48 kg

DRUGS (5)
  1. FURIX RETARD [Concomitant]
  2. ENALAPRIL MALEATE [Concomitant]
  3. FUROSEMIDE [Suspect]
     Dosage: 60MG
  4. PLENDIL [Concomitant]
  5. ATENOLOL [Concomitant]

REACTIONS (2)
  - BLOOD CREATININE INCREASED [None]
  - BLOOD POTASSIUM INCREASED [None]
